FAERS Safety Report 6567191-8 (Version None)
Quarter: 2010Q1

REPORT INFORMATION
  Report Type: 
  Country: None (occurrence: None)
  Receive Date: 20100128
  Receipt Date: 20100113
  Transmission Date: 20100710
  Serious: Yes (Death, Hospitalization)
  Sender: FDA-Public Use
  Company Number: 2009AC000052

PATIENT
  Age: 59 Year
  Sex: Male

DRUGS (9)
  1. DIGOXIN [Suspect]
     Dosage: 0.125 MG;PO
     Route: 048
     Dates: start: 20051209
  2. COUMADIN [Concomitant]
  3. SPIRIVA [Concomitant]
  4. ASTELIN [Concomitant]
  5. *NYQUIL [Concomitant]
  6. PROTONIX [Concomitant]
  7. LOVENOX [Concomitant]
  8. LEVAQUIN [Concomitant]
  9. COREG [Concomitant]

REACTIONS (19)
  - ARRHYTHMIA [None]
  - ARTERIOSCLEROSIS [None]
  - ATELECTASIS [None]
  - ATRIAL FIBRILLATION [None]
  - CARDIOMEGALY [None]
  - CHRONIC OBSTRUCTIVE PULMONARY DISEASE [None]
  - CYANOSIS [None]
  - EMPHYSEMA [None]
  - HYPOTENSION [None]
  - HYPOXIA [None]
  - INTERMITTENT CLAUDICATION [None]
  - LERICHE SYNDROME [None]
  - LUNG DISORDER [None]
  - MITRAL VALVE PROLAPSE [None]
  - NERVOUS SYSTEM DISORDER [None]
  - PALLOR [None]
  - PERIPHERAL VASCULAR DISORDER [None]
  - PLEURAL EFFUSION [None]
  - PULMONARY CONGESTION [None]
